FAERS Safety Report 10750878 (Version 2)
Quarter: 2015Q1

REPORT INFORMATION
  Report Type: Spontaneous
  Country: US (occurrence: None)
  Receive Date: 20150128
  Receipt Date: 20150219
  Transmission Date: 20150721
  Serious: Yes (Other)
  Sender: FDA-Public Use
  Company Number: ADR-2015-00159

PATIENT
  Age: 65 Year
  Sex: Female

DRUGS (2)
  1. COMPOUNDED BACLOFEN INTRATHECAL [Suspect]
     Active Substance: BACLOFEN
     Indication: MUSCLE SPASTICITY
     Dosage: 444.86 MCG/DAY; SEE B5
     Dates: start: 20150114
  2. ORAL BACLOFEN [Suspect]
     Active Substance: BACLOFEN
     Dosage: 10 MG TABLET, TID, PRN

REACTIONS (7)
  - Confusional state [None]
  - Device alarm issue [None]
  - Drug withdrawal syndrome [None]
  - Muscle spasticity [None]
  - Fatigue [None]
  - Feeling abnormal [None]
  - Drug dose omission [None]

NARRATIVE: CASE EVENT DATE: 20150109
